FAERS Safety Report 11860741 (Version 5)
Quarter: 2024Q4

REPORT INFORMATION
  Report Type: Spontaneous
  Country: FR (occurrence: FR)
  Receive Date: 20151222
  Receipt Date: 20241024
  Transmission Date: 20250115
  Serious: Yes (Hospitalization, Other)
  Sender: NOVARTIS
  Company Number: PHHY2015FR167359

PATIENT
  Age: 64 Year
  Sex: Female

DRUGS (4)
  1. CYCLOSPORINE [Interacting]
     Active Substance: CYCLOSPORINE
     Indication: Immunosuppressant drug therapy
     Dosage: 100 MG, QD
     Route: 065
  2. TERBINAFINE [Interacting]
     Active Substance: TERBINAFINE\TERBINAFINE HYDROCHLORIDE
     Indication: Neoscytalidium infection
     Dosage: UNK (SYSTEMIC TREATMENT)
     Route: 065
  3. TERBINAFINE [Interacting]
     Active Substance: TERBINAFINE\TERBINAFINE HYDROCHLORIDE
     Indication: Product used for unknown indication
     Dosage: UNK (LOCAL TREATMENT)
     Route: 065
  4. PREDNISOLONE [Suspect]
     Active Substance: PREDNISOLONE
     Indication: Immunosuppressant drug therapy
     Dosage: 10 MG, QD
     Route: 065

REACTIONS (3)
  - Fungal infection [Recovered/Resolved]
  - Renal impairment [Unknown]
  - Drug interaction [Unknown]
